FAERS Safety Report 5770654-6 (Version None)
Quarter: 2008Q2

REPORT INFORMATION
  Report Type: 
  Country: None (occurrence: None)
  Receive Date: 20080613
  Receipt Date: 20080508
  Transmission Date: 20081010
  Serious: No
  Sender: FDA-Public Use
  Company Number: US-ABBOTT-08P-163-0450995-00

PATIENT
  Sex: Female
  Weight: 73.094 kg

DRUGS (2)
  1. HUMIRA [Suspect]
     Indication: RHEUMATOID ARTHRITIS
     Route: 058
     Dates: start: 20070704
  2. PAROXETINE HCL [Concomitant]
     Indication: DEPRESSION
     Route: 048
     Dates: start: 20060101

REACTIONS (5)
  - EAR INFECTION [None]
  - RASH PAPULAR [None]
  - SINUSITIS [None]
  - TONSILLITIS [None]
  - TOOTH INFECTION [None]
